FAERS Safety Report 5072755-7 (Version None)
Quarter: 2006Q3

REPORT INFORMATION
  Report Type: 
  Country: None (occurrence: None)
  Receive Date: 20060807
  Receipt Date: 20060731
  Transmission Date: 20061208
  Serious: Yes (Hospitalization)
  Sender: FDA-Public Use
  Company Number: 2006UW15553

PATIENT
  Age: 34 Year
  Sex: Female

DRUGS (9)
  1. SEROQUEL [Suspect]
     Dosage: DOSE REDUCED FROM 800 MG TO 600 MG
     Route: 048
  2. SEROQUEL [Suspect]
     Dosage: DOSE REDUCED TO 600 MG
     Route: 048
  3. LITHIUM [Suspect]
     Route: 048
  4. EFFEXOR XR [Concomitant]
     Route: 048
  5. TRAZODONE HCL [Concomitant]
     Route: 048
  6. ATIVAN [Concomitant]
     Route: 048
  7. NEXIUM [Concomitant]
     Route: 048
  8. LIPITOR [Concomitant]
     Route: 048
  9. AMITRIPTYLINE HCL [Concomitant]
     Route: 048

REACTIONS (2)
  - HEPATIC ENZYME INCREASED [None]
  - THERAPEUTIC AGENT TOXICITY [None]
